FAERS Safety Report 9958419 (Version 1)
Quarter: 2014Q1

REPORT INFORMATION
  Report Type: Spontaneous
  Country: AR (occurrence: AR)
  Receive Date: 20140305
  Receipt Date: 20140305
  Transmission Date: 20141002
  Serious: Yes (Other)
  Sender: FDA-Public Use
  Company Number: AR-AMGEN-ARGSP2014015613

PATIENT
  Age: 55 Year
  Sex: Female

DRUGS (2)
  1. ENBREL [Suspect]
     Indication: PSORIATIC ARTHROPATHY
     Dosage: 50 MG, WEEKLY
     Route: 065
     Dates: start: 20111212
  2. METHOTREXATE SODIUM [Suspect]
     Indication: PSORIATIC ARTHROPATHY
     Dosage: 7.5 UNK, WEEKLY
     Route: 048
     Dates: start: 2011

REACTIONS (4)
  - Gallbladder disorder [Recovered/Resolved]
  - Asthma [Not Recovered/Not Resolved]
  - Foot deformity [Unknown]
  - Thyroid disorder [Recovered/Resolved]
